FAERS Safety Report 6933323-2 (Version None)
Quarter: 2010Q3

REPORT INFORMATION
  Report Type: 
  Country: None (occurrence: None)
  Receive Date: 20100820
  Receipt Date: 20100812
  Transmission Date: 20110219
  Serious: Yes (Other)
  Sender: FDA-Public Use
  Company Number: US-TYCO HEALTHCARE/MALLINCKRODT-T201001798

PATIENT
  Sex: Female
  Weight: 65.76 kg

DRUGS (1)
  1. METHADONE HCL [Suspect]
     Indication: FIBROMYALGIA
     Dosage: 5 MG, QD
     Route: 048
     Dates: start: 20100522, end: 20100808

REACTIONS (5)
  - CHEST PAIN [None]
  - FORMICATION [None]
  - HEADACHE [None]
  - PAIN [None]
  - WITHDRAWAL SYNDROME [None]
